FAERS Safety Report 9822333 (Version 5)
Quarter: 2014Q3

REPORT INFORMATION
  Report Type: Spontaneous
  Country: US (occurrence: US)
  Receive Date: 20140116
  Receipt Date: 20140715
  Transmission Date: 20150326
  Serious: Yes (Hospitalization, Disabling, Other)
  Sender: FDA-Public Use
  Company Number: US-009507513-1401USA002073

PATIENT
  Sex: Female
  Weight: 78.46 kg

DRUGS (4)
  1. ALENDRONATE SODIUM. [Suspect]
     Active Substance: ALENDRONATE SODIUM
     Dosage: 70 MG, UNK
     Route: 048
     Dates: start: 20110523, end: 20111009
  2. FOSAMAX [Suspect]
     Active Substance: ALENDRONATE SODIUM
     Indication: OSTEOPENIA
  3. FOSAMAX PLUS D [Suspect]
     Active Substance: ALENDRONATE SODIUM\CHOLECALCIFEROL
     Dosage: 70/2800 MG, QW
     Route: 048
  4. FOSAMAX [Suspect]
     Active Substance: ALENDRONATE SODIUM
     Indication: OSTEOPOROSIS
     Dosage: 70 MG, QW
     Route: 048
     Dates: start: 200807, end: 201112

REACTIONS (24)
  - Osteonecrosis of jaw [Unknown]
  - Tooth extraction [Unknown]
  - Osteoarthritis [Unknown]
  - Small intestinal haemorrhage [Unknown]
  - Tooth extraction [Unknown]
  - Cholecystectomy [Unknown]
  - Paraesthesia oral [Unknown]
  - Acute sinusitis [Unknown]
  - Cystopexy [Unknown]
  - Bone debridement [Unknown]
  - Sequestrectomy [Unknown]
  - Oral cavity fistula [Unknown]
  - Transient ischaemic attack [Unknown]
  - Spinal fusion surgery [Unknown]
  - Supraventricular extrasystoles [Unknown]
  - Bone debridement [Unknown]
  - Sequestrectomy [Unknown]
  - Atrial fibrillation [Unknown]
  - Intervertebral disc protrusion [Unknown]
  - Carpal tunnel syndrome [Unknown]
  - Carpal tunnel decompression [Unknown]
  - Dental caries [Unknown]
  - Osteopetrosis [Unknown]
  - Back disorder [Unknown]

NARRATIVE: CASE EVENT DATE: 2011
